FAERS Safety Report 7032125-9 (Version None)
Quarter: 2010Q4

REPORT INFORMATION
  Report Type: 
  Country: None (occurrence: None)
  Receive Date: 20101007
  Receipt Date: 20091223
  Transmission Date: 20110411
  Serious: Yes (Hospitalization, Other)
  Sender: FDA-Public Use
  Company Number: DE-BRISTOL-MYERS SQUIBB COMPANY-14915862

PATIENT
  Age: 76 Year
  Sex: Male
  Weight: 90 kg

DRUGS (11)
  1. CETUXIMAB [Suspect]
     Indication: COLORECTAL CANCER
     Dosage: 5MG/ML,REC INF: 22DEC09,03NOV09TO22DEC09,RESTARTED ON 12JAN2010,DURATION:49D
     Route: 042
     Dates: start: 20091103
  2. OXALIPLATIN [Suspect]
     Indication: COLORECTAL CANCER
     Dosage: REC INF: 15DEC09,03NOV09TO22DEC9,RESTARTED ON 12JAN2010,DURATION:49D
     Route: 042
     Dates: start: 20091103
  3. FLUOROURACIL [Suspect]
     Indication: COLORECTAL CANCER
     Dosage: REC INF: 15DEC09,03NOV09TO22DEC09(49D),RESTARTED ON 12JAN2010
     Route: 042
     Dates: start: 20091103
  4. FOLINIC ACID [Suspect]
     Indication: COLORECTAL CANCER
     Dosage: REC INF: 15DEC09,03NOV09TO22DEC09(49D),RESTARTED ON 12JAN2010
     Route: 042
     Dates: start: 20091103
  5. FINASTERIDE [Concomitant]
  6. VOLTAREN [Concomitant]
     Dosage: VOLTAREN RESINATE
     Dates: start: 20080101
  7. ACETYLSALICYLIC ACID SRT [Concomitant]
  8. ATENOLOL [Concomitant]
  9. KALINORM [Concomitant]
     Dosage: KALINOR BTA
     Dates: start: 20091216
  10. ERYDERM [Concomitant]
     Route: 061
     Dates: start: 20091216
  11. ATENOLOL AND CHLORTHALIDONE [Concomitant]

REACTIONS (1)
  - TRANSIENT ISCHAEMIC ATTACK [None]
